FAERS Safety Report 24667038 (Version 1)
Quarter: 2024Q4

REPORT INFORMATION
  Report Type: Spontaneous
  Country: SK (occurrence: SK)
  Receive Date: 20241126
  Receipt Date: 20241126
  Transmission Date: 20250114
  Serious: Yes (Life-Threatening, Hospitalization)
  Sender: MYLAN
  Company Number: SK-BBM-SK-BBM-202403641

PATIENT
  Age: 30 Year
  Sex: Male
  Weight: 60 kg

DRUGS (5)
  1. VANCOMYCIN [Suspect]
     Active Substance: VANCOMYCIN
     Indication: Product used for unknown indication
     Dosage: 30 MG/KG/DAY IN 2 DOSES
     Route: 065
  2. GENTAMICIN [Suspect]
     Active Substance: GENTAMICIN
     Indication: Product used for unknown indication
     Dosage: 3 MILLIGRAM/KILOGRAM, QD
     Route: 065
  3. RIFAMPIN [Suspect]
     Active Substance: RIFAMPIN
     Indication: Product used for unknown indication
     Dosage: 300 MILLIGRAM, Q8H
     Route: 065
  4. ETHAMSYLATE [Concomitant]
     Active Substance: ETHAMSYLATE
     Dosage: UNK
     Route: 065
  5. NIMODIPINE [Concomitant]
     Active Substance: NIMODIPINE
     Dosage: UNK
     Route: 065

REACTIONS (1)
  - Drug ineffective [Unknown]
